FAERS Safety Report 8129207 (Version 5)
Quarter: 2013Q2

REPORT INFORMATION
  Report Type: Report from Study
  Country: JP (occurrence: JP)
  Receive Date: 20110909
  Receipt Date: 20130621
  Transmission Date: 20140414
  Serious: No
  Sender: FDA-Public Use
  Company Number: JP-JNJFOC-20110902652

PATIENT
  Age: 46 Year
  Sex: Female

DRUGS (8)
  1. DUROTEP MT [Suspect]
     Indication: PROCEDURAL PAIN
     Route: 062
     Dates: start: 20100611, end: 20100806
  2. DUROTEP MT [Suspect]
     Indication: PROCEDURAL PAIN
     Route: 062
     Dates: start: 20100514, end: 20100611
  3. TAMBOCOR [Concomitant]
     Indication: PROCEDURAL PAIN
     Route: 048
     Dates: end: 20100709
  4. MAGNESIUM OXIDE [Concomitant]
     Indication: PROPHYLAXIS
     Route: 048
     Dates: start: 20100514, end: 20100709
  5. NOVAMIN [Concomitant]
     Indication: PROPHYLAXIS
     Route: 048
     Dates: start: 20100514, end: 20100709
  6. PURSENNID [Concomitant]
     Indication: PROPHYLAXIS
     Route: 048
     Dates: start: 20100514, end: 20100709
  7. CARBOCAIN [Concomitant]
     Indication: PAIN
     Route: 065
     Dates: start: 20100519
  8. NEUROTROPIN [Concomitant]
     Indication: PROCEDURAL PAIN
     Route: 048

REACTIONS (4)
  - Nausea [Recovered/Resolved]
  - Vomiting [Recovered/Resolved]
  - Drug intolerance [Unknown]
  - Wrong technique in drug usage process [Unknown]
